FAERS Safety Report 7275164-5 (Version None)
Quarter: 2011Q1

REPORT INFORMATION
  Report Type: 
  Country: None (occurrence: None)
  Receive Date: 20110121
  Receipt Date: 20110117
  Transmission Date: 20110831
  Serious: Yes (Hospitalization)
  Sender: FDA-Public Use
  Company Number: WAES 1101USA01823

PATIENT
  Sex: Male

DRUGS (6)
  1. PYRAZINAMIDE [Concomitant]
  2. ISENTRESS [Suspect]
     Indication: HIV INFECTION
     Route: 048
     Dates: start: 20101116
  3. ETHAMBUTOL HYDROCHLORIDE [Concomitant]
  4. ALUVIA (LOPINAVIR (+) RITONAVIR) [Suspect]
     Indication: HIV INFECTION
     Dates: start: 20101116
  5. ISONIAZID [Concomitant]
  6. RIFABUTIN [Concomitant]

REACTIONS (6)
  - LETHARGY [None]
  - GAMMA-GLUTAMYLTRANSFERASE INCREASED [None]
  - PRURITUS GENERALISED [None]
  - DECREASED APPETITE [None]
  - LIP ULCERATION [None]
  - BLOOD ALKALINE PHOSPHATASE INCREASED [None]
